FAERS Safety Report 20704733 (Version 2)
Quarter: 2023Q1

REPORT INFORMATION
  Report Type: Report from Study
  Country: US (occurrence: US)
  Receive Date: 20220413
  Receipt Date: 20230103
  Transmission Date: 20230418
  Serious: Yes (Hospitalization, Other)
  Sender: FDA-Public Use
  Company Number: US-009507513-2203USA009222

PATIENT
  Age: 64 Year
  Sex: Female

DRUGS (1)
  1. PREVYMIS [Suspect]
     Active Substance: LETERMOVIR
     Indication: Antiviral prophylaxis
     Dosage: STRENGTH, 480 MILLIGRAM (MG), ONCE DAILY(QD)
     Route: 048

REACTIONS (7)
  - COVID-19 [Unknown]
  - Ear infection [Unknown]
  - Pneumonia [Unknown]
  - Memory impairment [Unknown]
  - Off label use [Unknown]
  - Product dose omission issue [Unknown]
  - Product dose omission issue [Unknown]

NARRATIVE: CASE EVENT DATE: 20220325
